FAERS Safety Report 8575301-6 (Version None)
Quarter: 2012Q3

REPORT INFORMATION
  Report Type: 
  Country: None (occurrence: None)
  Receive Date: 20120807
  Receipt Date: 20120802
  Transmission Date: 20120928
  Serious: No
  Sender: FDA-Public Use
  Company Number: US-PFIZER INC-2012147259

PATIENT
  Age: 53 Year
  Sex: Female

DRUGS (4)
  1. CODEINE [Concomitant]
  2. LYRICA [Suspect]
     Dosage: 75MG STRENGTH, 4 PER DAY (2 IN THE MORNING, 2 AT BEDTIME)
     Route: 048
  3. PERCOCET [Concomitant]
     Dosage: UNK
  4. PERCODAN [Concomitant]
     Dosage: UNK

REACTIONS (4)
  - DRUG INTOLERANCE [None]
  - OEDEMA PERIPHERAL [None]
  - FIBROMYALGIA [None]
  - SOMNOLENCE [None]
